FAERS Safety Report 6619014-6 (Version None)
Quarter: 2010Q1

REPORT INFORMATION
  Report Type: 
  Country: None (occurrence: None)
  Receive Date: 20100308
  Receipt Date: 20100205
  Transmission Date: 20100710
  Serious: No
  Sender: FDA-Public Use
  Company Number: US-BAYER-201011816BCC

PATIENT
  Age: 84 Year
  Sex: Male
  Weight: 81 kg

DRUGS (4)
  1. ALEVE (CAPLET) [Suspect]
     Indication: BACK PAIN
     Dosage: TOTAL DAILY DOSE: 440 MG  UNIT DOSE: 220 MG
     Route: 048
     Dates: start: 20100201
  2. WARFARIN SODIUM [Concomitant]
     Route: 065
  3. LEVOTHYROXINE SODIUM [Concomitant]
     Route: 065
  4. TOPROL-XL [Concomitant]
     Route: 065

REACTIONS (2)
  - FLATULENCE [None]
  - NAUSEA [None]
